FAERS Safety Report 18649411 (Version 1)
Quarter: 2020Q4

REPORT INFORMATION
  Report Type: Spontaneous
  Country: ES (occurrence: ES)
  Receive Date: 20201222
  Receipt Date: 20201222
  Transmission Date: 20210114
  Serious: No
  Sender: FDA-Public Use
  Company Number: ES-LUPIN PHARMACEUTICALS INC.-2020-10566

PATIENT
  Age: 11 Year
  Sex: Female

DRUGS (1)
  1. METRONIDAZOLE. [Suspect]
     Active Substance: METRONIDAZOLE
     Indication: GASTROINTESTINAL BACTERIAL OVERGROWTH
     Dosage: 250 MILLIGRAM, BID (FOR 1 WEEK EVERY MONTH)
     Route: 065

REACTIONS (4)
  - Urticaria [Recovered/Resolved]
  - Type IV hypersensitivity reaction [Recovering/Resolving]
  - Rash [Recovering/Resolving]
  - Pruritus [Recovering/Resolving]
